FAERS Safety Report 6445725-1 (Version None)
Quarter: 2009Q4

REPORT INFORMATION
  Report Type: 
  Country: None (occurrence: None)
  Receive Date: 20091118
  Receipt Date: 20091118
  Transmission Date: 20100525
  Serious: Yes (Other)
  Sender: FDA-Public Use
  Company Number: None

PATIENT
  Age: 35 Year
  Sex: Female
  Weight: 86.637 kg

DRUGS (2)
  1. BYETTA [Suspect]
     Indication: WEIGHT CONTROL
     Dosage: ONE INJECTION 2 TIMES A DAY SQ
     Route: 058
     Dates: start: 20091008, end: 20091031
  2. BYETTA [Suspect]
     Indication: WEIGHT CONTROL
     Dosage: ONE INJECTION 2 TIMES A DAY SQ
     Route: 058
     Dates: start: 20091105, end: 20091105

REACTIONS (10)
  - ARTHROPOD BITE [None]
  - CHEST PAIN [None]
  - DECREASED APPETITE [None]
  - DYSPNOEA [None]
  - FLUSHING [None]
  - INJECTION SITE REACTION [None]
  - INJECTION SITE URTICARIA [None]
  - OEDEMA PERIPHERAL [None]
  - PRURITUS [None]
  - URTICARIA [None]
